FAERS Safety Report 6994106-0 (Version None)
Quarter: 2010Q3

REPORT INFORMATION
  Report Type: 
  Country: None (occurrence: None)
  Receive Date: 20100917
  Receipt Date: 20091202
  Transmission Date: 20110219
  Serious: No
  Sender: FDA-Public Use
  Company Number: US-ASTRAZENECA-2009SE29735

PATIENT
  Age: 57 Year
  Sex: Male

DRUGS (14)
  1. QUETIAPINE [Interacting]
     Indication: TARDIVE DYSKINESIA
  2. QUETIAPINE [Interacting]
  3. QUETIAPINE [Interacting]
  4. RITONAVIR [Interacting]
     Indication: ANTIRETROVIRAL THERAPY
  5. ATAZANAVIR [Suspect]
     Indication: ANTIRETROVIRAL THERAPY
  6. LITHIUM CARBONATE [Concomitant]
     Indication: BIPOLAR DISORDER
  7. ATENOLOL [Concomitant]
  8. ABACAVIR [Concomitant]
     Indication: ANTIRETROVIRAL THERAPY
  9. TENOFOVIR [Concomitant]
     Indication: ANTIRETROVIRAL THERAPY
  10. LAMIVUDINE [Concomitant]
     Indication: ANTIRETROVIRAL THERAPY
  11. LAMOTRIGINE [Concomitant]
     Indication: BIPOLAR DISORDER
  12. SUSTAINED-RELEASE BUPROPION [Concomitant]
     Indication: BIPOLAR DISORDER
  13. FENOFIBRATE [Concomitant]
  14. FAMOTIDINE [Concomitant]

REACTIONS (5)
  - ABNORMAL WEIGHT GAIN [None]
  - DRUG INTERACTION [None]
  - DRUG TOXICITY [None]
  - MUSCULOSKELETAL DISCOMFORT [None]
  - PLANTAR FASCIITIS [None]
